FAERS Safety Report 23195462 (Version 1)
Quarter: 2023Q4

REPORT INFORMATION
  Report Type: Spontaneous
  Country: US (occurrence: US)
  Receive Date: 20231117
  Receipt Date: 20231117
  Transmission Date: 20240109
  Serious: No
  Sender: FDA-Public Use
  Company Number: US-SA-SAC20231110000240

PATIENT
  Age: 51 Year
  Sex: Female
  Weight: 80.726 kg

DRUGS (1)
  1. DUPIXENT [Suspect]
     Active Substance: DUPILUMAB
     Indication: Dermatitis atopic
     Dosage: 300 MG, QOW
     Route: 058
     Dates: start: 20220511

REACTIONS (8)
  - Urinary tract infection [Not Recovered/Not Resolved]
  - Dry skin [Not Recovered/Not Resolved]
  - COVID-19 [Unknown]
  - Food poisoning [Unknown]
  - Gallbladder disorder [Unknown]
  - Pruritus [Not Recovered/Not Resolved]
  - Skin exfoliation [Not Recovered/Not Resolved]
  - Injection site pain [Not Recovered/Not Resolved]

NARRATIVE: CASE EVENT DATE: 20230701
